FAERS Safety Report 5452091-7 (Version None)
Quarter: 2007Q3

REPORT INFORMATION
  Report Type: 
  Country: None (occurrence: None)
  Receive Date: 20070803
  Receipt Date: 20061004
  Transmission Date: 20080115
  Serious: Yes (Hospitalization)
  Sender: FDA-Public Use
  Company Number: 06P-163-0343983-00

PATIENT
  Age: 51 Year
  Sex: Male

DRUGS (20)
  1. NORVIR [Suspect]
     Indication: HIV INFECTION
     Dosage: 100 MG, 5 IN 1 D, PER ORAL
     Route: 048
     Dates: start: 20031104
  2. APTIVUS [Suspect]
     Indication: HIV INFECTION
     Dosage: SEE IMAGE
     Route: 048
     Dates: start: 20031104
  3. ATORVASTATIN CALCIUM [Concomitant]
  4. GEMFIBROZIL [Concomitant]
  5. ZOLPIDEM TARTRATE [Concomitant]
  6. NORTRIPTYLINE HCL [Concomitant]
  7. LORATADINE [Concomitant]
  8. MAGNOSTEIN NUTRITIONAL SUPPLEMENT [Concomitant]
  9. PANTOPRAZOLE SODIUM [Concomitant]
  10. ATIVAN [Concomitant]
  11. RITONAVIR [Concomitant]
  12. EFAVIRENZ [Concomitant]
  13. ABACAVIR SULFATE [Concomitant]
  14. POLYCARBOPHIL CALCIUM [Concomitant]
  15. POTASSIUM CHLORIDE [Concomitant]
  16. LAMOTRIGINE [Concomitant]
  17. LOPERAMIDE HCL [Concomitant]
  18. MESALAZINE [Concomitant]
  19. VITAMIN CAP [Concomitant]
  20. ATENOLOL [Concomitant]

REACTIONS (5)
  - ACUTE HEPATIC FAILURE [None]
  - ALTERED STATE OF CONSCIOUSNESS [None]
  - BLOOD AMYLASE INCREASED [None]
  - CONSTIPATION [None]
  - RENAL FAILURE ACUTE [None]
